FAERS Safety Report 15302519 (Version 1)
Quarter: 2018Q3

REPORT INFORMATION
  Report Type: Spontaneous
  Country: US (occurrence: US)
  Receive Date: 20180821
  Receipt Date: 20180821
  Transmission Date: 20181010
  Serious: No
  Sender: FDA-Public Use
  Company Number: US-BAYER-2018-155530

PATIENT
  Sex: Female

DRUGS (3)
  1. ALEVE [Suspect]
     Active Substance: NAPROXEN SODIUM
     Indication: PAIN
     Dosage: 1 DF, BID
     Route: 048
     Dates: start: 201808
  2. ALEVE [Suspect]
     Active Substance: NAPROXEN SODIUM
     Indication: MENISCUS INJURY
  3. ALEVE [Suspect]
     Active Substance: NAPROXEN SODIUM
     Indication: SWELLING

REACTIONS (2)
  - Drug effective for unapproved indication [Unknown]
  - Product use issue [None]

NARRATIVE: CASE EVENT DATE: 201808
